FAERS Safety Report 25486193 (Version 1)
Quarter: 2025Q2

REPORT INFORMATION
  Report Type: Spontaneous
  Country: CN (occurrence: CN)
  Receive Date: 20250626
  Receipt Date: 20250626
  Transmission Date: 20250717
  Serious: Yes (Life-Threatening, Hospitalization)
  Sender: BEIGENE
  Company Number: CN-BEIGENE-BGN-2025-010229

PATIENT
  Age: 61 Year
  Weight: 64 kg

DRUGS (12)
  1. TISLELIZUMAB [Suspect]
     Active Substance: TISLELIZUMAB
     Indication: Malignant neoplasm of pleura
     Dosage: 200 MILLIGRAM, Q3WK, D1
  2. TISLELIZUMAB [Suspect]
     Active Substance: TISLELIZUMAB
     Dosage: 200 MILLIGRAM, Q3WK, D1
     Route: 041
  3. TISLELIZUMAB [Suspect]
     Active Substance: TISLELIZUMAB
     Dosage: 200 MILLIGRAM, Q3WK, D1
     Route: 041
  4. TISLELIZUMAB [Suspect]
     Active Substance: TISLELIZUMAB
     Dosage: 200 MILLIGRAM, Q3WK, D1
  5. CARBOPLATIN [Concomitant]
     Active Substance: CARBOPLATIN
     Indication: Malignant neoplasm of pleura
     Dosage: 0.3 GRAM, Q3WK, D1
  6. CARBOPLATIN [Concomitant]
     Active Substance: CARBOPLATIN
     Dosage: 0.3 GRAM, Q3WK, D1
     Route: 041
  7. CARBOPLATIN [Concomitant]
     Active Substance: CARBOPLATIN
     Dosage: 0.3 GRAM, Q3WK, D1
     Route: 041
  8. CARBOPLATIN [Concomitant]
     Active Substance: CARBOPLATIN
     Dosage: 0.3 GRAM, Q3WK, D1
  9. PEMETREXED [Concomitant]
     Active Substance: PEMETREXED
     Indication: Malignant neoplasm of pleura
     Dosage: 0.8 GRAM, Q3WK, D1
  10. PEMETREXED [Concomitant]
     Active Substance: PEMETREXED
     Dosage: 0.8 GRAM, Q3WK, D1
     Route: 041
  11. PEMETREXED [Concomitant]
     Active Substance: PEMETREXED
     Dosage: 0.8 GRAM, Q3WK, D1
     Route: 041
  12. PEMETREXED [Concomitant]
     Active Substance: PEMETREXED
     Dosage: 0.8 GRAM, Q3WK, D1

REACTIONS (1)
  - Liver injury [Unknown]
